FAERS Safety Report 12265639 (Version 2)
Quarter: 2016Q2

REPORT INFORMATION
  Report Type: Spontaneous
  Country: ES (occurrence: ES)
  Receive Date: 20160413
  Receipt Date: 20160609
  Transmission Date: 20160815
  Serious: Yes (Other)
  Sender: FDA-Public Use
  Company Number: ES-SUNOVION-2016SUN000894

PATIENT

DRUGS (5)
  1. ZEBINIX [Suspect]
     Active Substance: ESLICARBAZEPINE ACETATE
     Indication: EPILEPSY
     Dosage: 1600 MG, QD
     Route: 048
     Dates: start: 20140124
  2. VIMPAT [Interacting]
     Active Substance: LACOSAMIDE
     Dosage: 200 MG, BID
     Route: 048
     Dates: start: 2014
  3. CIPROFLOXACIN. [Interacting]
     Active Substance: CIPROFLOXACIN
     Indication: LYMPHADENOPATHY
     Dosage: UNK
     Route: 048
     Dates: start: 201603, end: 201603
  4. VIMPAT [Interacting]
     Active Substance: LACOSAMIDE
     Indication: EPILEPSY
     Dosage: 100 MG, BID
     Route: 048
     Dates: start: 201410
  5. LAMOTRIGINE. [Interacting]
     Active Substance: LAMOTRIGINE
     Indication: EPILEPSY
     Dosage: UNK
     Route: 065

REACTIONS (4)
  - Drug dose titration not performed [Unknown]
  - Drug interaction [Unknown]
  - Epilepsy [Recovered/Resolved]
  - Overdose [Unknown]

NARRATIVE: CASE EVENT DATE: 20140124
